FAERS Safety Report 17938768 (Version 1)
Quarter: 2020Q2

REPORT INFORMATION
  Report Type: Spontaneous
  Country: TR (occurrence: TR)
  Receive Date: 20200624
  Receipt Date: 20200624
  Transmission Date: 20200714
  Serious: Yes (Other)
  Sender: FDA-Public Use
  Company Number: NVSC2020TR175781

PATIENT
  Age: 67 Year
  Sex: Female

DRUGS (1)
  1. SANDOSTATIN LAR DEPOT [Suspect]
     Active Substance: OCTREOTIDE ACETATE
     Indication: SOLITARY FIBROUS TUMOUR
     Dosage: UNK (FORMULATION MICROCAPUSE VIAL) EVERY 45 DAYS
     Route: 065
     Dates: start: 202003

REACTIONS (6)
  - Apnoea [Unknown]
  - Hypoglycaemia [Unknown]
  - Drug interaction [Unknown]
  - Swelling [Unknown]
  - Product use in unapproved indication [Unknown]
  - Weight increased [Unknown]
